FAERS Safety Report 6889429-X (Version None)
Quarter: 2010Q3

REPORT INFORMATION
  Report Type: 
  Country: None (occurrence: None)
  Receive Date: 20100730
  Receipt Date: 20080221
  Transmission Date: 20110219
  Serious: No
  Sender: FDA-Public Use
  Company Number: US-PFIZER INC-2007064876

PATIENT
  Age: 84 Year
  Sex: Female
  Weight: 68.1 kg

DRUGS (3)
  1. LIPITOR [Suspect]
     Indication: BLOOD CHOLESTEROL ABNORMAL
     Dates: start: 20070716
  2. ANTIHYPERTENSIVES [Concomitant]
  3. DRUG, UNSPECIFIED [Concomitant]

REACTIONS (5)
  - ASTHENIA [None]
  - FATIGUE [None]
  - HYPERSOMNIA [None]
  - MUSCULAR WEAKNESS [None]
  - MYALGIA [None]
